FAERS Safety Report 6726900-5 (Version None)
Quarter: 2010Q2

REPORT INFORMATION
  Report Type: 
  Country: None (occurrence: None)
  Receive Date: 20100517
  Receipt Date: 20100507
  Transmission Date: 20101027
  Serious: Yes (Hospitalization)
  Sender: FDA-Public Use
  Company Number: JP-SP-2010-02494

PATIENT
  Age: 64 Year
  Sex: Male

DRUGS (1)
  1. IMMUCYST [Suspect]
     Indication: BLADDER CANCER
     Route: 065
     Dates: start: 20100311, end: 20100408

REACTIONS (2)
  - PYREXIA [None]
  - URINARY TRACT INFECTION [None]
